FAERS Safety Report 8824487 (Version 1)
Quarter: 2012Q4

REPORT INFORMATION
  Report Type: 
  Country: FR (occurrence: FR)
  Receive Date: 20121004
  Receipt Date: 20121004
  Transmission Date: 20130627
  Serious: Yes (Other)
  Sender: FDA-Public Use
  Company Number: FR-B.I. PHARMACEUTICALS,INC./RIDGEFIELD-2012-FF-01292FF

PATIENT
  Age: 71 Year
  Sex: Male
  Weight: 88 kg

DRUGS (5)
  1. PRADAXA [Suspect]
     Dosage: 220 mg
     Route: 048
     Dates: start: 20120530, end: 20120920
  2. ALFUZOSIN [Concomitant]
     Dosage: 10 mg
  3. KEPPRA [Concomitant]
     Dosage: 500 mg
  4. LODOZ [Concomitant]
     Dosage: 5/6.25mg daily
  5. KENZEN [Concomitant]
     Dosage: 8 mg

REACTIONS (3)
  - Tremor [Recovered/Resolved]
  - Pruritus [Recovered/Resolved]
  - Facial neuralgia [Recovered/Resolved]
